FAERS Safety Report 23262855 (Version 1)
Quarter: 2023Q4

REPORT INFORMATION
  Report Type: Spontaneous
  Country: US (occurrence: None)
  Receive Date: 20231204
  Receipt Date: 20231204
  Transmission Date: 20240110
  Serious: Yes (Other)
  Sender: FDA-Public Use
  Company Number: None

PATIENT
  Age: 58 Year
  Sex: Male
  Weight: 98.7 kg

DRUGS (1)
  1. PACLITAXEL [Suspect]
     Active Substance: PACLITAXEL
     Route: 042
     Dates: start: 20231024, end: 20231128

REACTIONS (5)
  - Flushing [None]
  - Dyspnoea [None]
  - Anxiety [None]
  - Chest pain [None]
  - Infusion related reaction [None]

NARRATIVE: CASE EVENT DATE: 20231024
